FAERS Safety Report 7419055-5 (Version None)
Quarter: 2011Q2

REPORT INFORMATION
  Report Type: 
  Country: None (occurrence: None)
  Receive Date: 20110415
  Receipt Date: 20110404
  Transmission Date: 20111010
  Serious: Yes (Other)
  Sender: FDA-Public Use
  Company Number: PHHY2011US28640

PATIENT
  Sex: Female

DRUGS (2)
  1. RECLAST [Suspect]
     Indication: OSTEOPOROSIS
     Dosage: UNK
     Route: 042
     Dates: start: 20090801
  2. RECLAST [Suspect]
     Dosage: UNK
     Route: 042
     Dates: start: 20100801

REACTIONS (2)
  - TOOTH DISORDER [None]
  - JAW DISORDER [None]
